FAERS Safety Report 16962873 (Version 2)
Quarter: 2019Q4

REPORT INFORMATION
  Report Type: Spontaneous
  Country: UZ (occurrence: UZ)
  Receive Date: 20191025
  Receipt Date: 20191213
  Transmission Date: 20200122
  Serious: Yes (Other)
  Sender: FDA-Public Use
  Company Number: UZ-JNJFOC-20191016680

PATIENT
  Age: 45 Year
  Sex: Male
  Weight: 83 kg

DRUGS (22)
  1. LINEZOLID. [Suspect]
     Active Substance: LINEZOLID
     Dates: start: 20190828, end: 20191005
  2. CLOFAZIMINE [Suspect]
     Active Substance: CLOFAZIMINE
     Dates: start: 20190816, end: 201908
  3. LINEZOLID. [Suspect]
     Active Substance: LINEZOLID
     Dates: start: 20190810, end: 201908
  4. LINEZOLID. [Suspect]
     Active Substance: LINEZOLID
     Dates: start: 20190816, end: 201908
  5. CLOFAZIMINE [Suspect]
     Active Substance: CLOFAZIMINE
     Dates: start: 20190810, end: 201908
  6. PROTHIONAMIDE [Suspect]
     Active Substance: PROTIONAMIDE
     Indication: TUBERCULOSIS
     Dates: start: 20190726, end: 2019
  7. LINEZOLID. [Suspect]
     Active Substance: LINEZOLID
     Indication: TUBERCULOSIS
     Dates: start: 20190726, end: 2019
  8. CAPREOMYCIN [Suspect]
     Active Substance: CAPREOMYCIN
     Route: 030
     Dates: start: 20190816, end: 201908
  9. LEVOFLOXACIN. [Suspect]
     Active Substance: LEVOFLOXACIN
     Indication: TUBERCULOSIS
     Dates: start: 20190726, end: 2019
  10. PROTHIONAMIDE [Suspect]
     Active Substance: PROTIONAMIDE
     Dates: start: 20190810, end: 201908
  11. BEDAQUILINE [Suspect]
     Active Substance: BEDAQUILINE
     Route: 048
     Dates: start: 20190810, end: 20191005
  12. CLOFAZIMINE [Suspect]
     Active Substance: CLOFAZIMINE
     Indication: TUBERCULOSIS
     Dates: start: 20190726, end: 2019
  13. CAPREOMYCIN [Suspect]
     Active Substance: CAPREOMYCIN
     Indication: TUBERCULOSIS
     Route: 030
     Dates: start: 20190726, end: 2019
  14. PROTHIONAMIDE [Suspect]
     Active Substance: PROTIONAMIDE
     Dates: start: 20190816, end: 201908
  15. BEDAQUILINE [Suspect]
     Active Substance: BEDAQUILINE
     Indication: TUBERCULOSIS
     Dosage: 200 MG ALTERNATE DAY
     Route: 048
     Dates: start: 20190726, end: 2019
  16. CLOFAZIMINE [Suspect]
     Active Substance: CLOFAZIMINE
     Dates: start: 20190828, end: 20191005
  17. CAPREOMYCIN [Suspect]
     Active Substance: CAPREOMYCIN
     Route: 030
     Dates: start: 20190810, end: 201908
  18. LEVOFLOXACIN. [Suspect]
     Active Substance: LEVOFLOXACIN
     Dates: start: 20190816, end: 201908
  19. PROTHIONAMIDE [Suspect]
     Active Substance: PROTIONAMIDE
     Dates: start: 20190828, end: 20191005
  20. CAPREOMYCIN [Suspect]
     Active Substance: CAPREOMYCIN
     Route: 030
     Dates: start: 20190828, end: 20191005
  21. LEVOFLOXACIN. [Suspect]
     Active Substance: LEVOFLOXACIN
     Dates: start: 20190810, end: 201908
  22. LEVOFLOXACIN. [Suspect]
     Active Substance: LEVOFLOXACIN
     Dates: start: 20190828, end: 201910

REACTIONS (7)
  - Vomiting [Unknown]
  - Dizziness [Unknown]
  - Aspartate aminotransferase increased [Unknown]
  - Vision blurred [Unknown]
  - Limb injury [Unknown]
  - Alanine aminotransferase increased [Not Recovered/Not Resolved]
  - Syncope [Unknown]

NARRATIVE: CASE EVENT DATE: 2019
